FAERS Safety Report 9043334 (Version 1)
Quarter: 2013Q1

REPORT INFORMATION
  Report Type: Report from Study
  Country: US (occurrence: US)
  Receive Date: 20130129
  Receipt Date: 20130129
  Transmission Date: 20140127
  Serious: No
  Sender: FDA-Public Use
  Company Number: US-ABBOTT-12P-163-0914505-00

PATIENT
  Age: 60 Year
  Sex: Male

DRUGS (7)
  1. HUMIRA 40 MG/0.8 ML PEN [Suspect]
     Indication: CROHN^S DISEASE
     Dates: start: 20111231, end: 20120310
  2. HUMIRA 40 MG/0.8 ML PEN [Suspect]
     Dates: start: 20120310
  3. PREDNISONE [Suspect]
     Indication: PRODUCT USED FOR UNKNOWN INDICATION
  4. VITAMIN D [Concomitant]
     Indication: PRODUCT USED FOR UNKNOWN INDICATION
  5. PRILOSEC [Concomitant]
     Indication: PRODUCT USED FOR UNKNOWN INDICATION
  6. UNKNOWN BLOOD PRESSURE PILL [Concomitant]
     Indication: PRODUCT USED FOR UNKNOWN INDICATION
  7. BALSALAZIDE [Concomitant]
     Indication: PRODUCT USED FOR UNKNOWN INDICATION

REACTIONS (2)
  - Agitation [Not Recovered/Not Resolved]
  - Mental disorder [Not Recovered/Not Resolved]
